FAERS Safety Report 15694782 (Version 6)
Quarter: 2019Q2

REPORT INFORMATION
  Report Type: Spontaneous
  Country: US (occurrence: US)
  Receive Date: 20181206
  Receipt Date: 20190628
  Transmission Date: 20190711
  Serious: No
  Sender: FDA-Public Use
  Company Number: US-PFIZER INC-2016374806

PATIENT
  Age: 67 Year
  Sex: Male
  Weight: 78 kg

DRUGS (6)
  1. ALPRAZOLAM. [Suspect]
     Active Substance: ALPRAZOLAM
     Indication: STRESS
     Dosage: 2 MG, ONCE DAILY (AT BEDTIME NIGHTLY)
     Route: 048
  2. ALPRAZOLAM. [Suspect]
     Active Substance: ALPRAZOLAM
     Indication: SLEEP DISORDER
  3. ALPRAZOLAM. [Suspect]
     Active Substance: ALPRAZOLAM
     Indication: ANXIETY
     Dosage: 1 MG, ONCE DAILY (AT NIGHT)
     Route: 048
  4. VIAGRA [Concomitant]
     Active Substance: SILDENAFIL CITRATE
     Indication: CARDIOVASCULAR DISORDER
     Dosage: UNK
  5. ALPRAZOLAM. [Suspect]
     Active Substance: ALPRAZOLAM
     Indication: CHRONIC OBSTRUCTIVE PULMONARY DISEASE
  6. ZOLPIDEM [Concomitant]
     Active Substance: ZOLPIDEM\ZOLPIDEM TARTRATE
     Dosage: UNK

REACTIONS (12)
  - Insomnia [Recovered/Resolved]
  - Withdrawal syndrome [Recovered/Resolved]
  - Lung disorder [Unknown]
  - Pre-existing condition improved [Unknown]
  - Therapeutic response unexpected [Unknown]
  - Muscle atrophy [Unknown]
  - Dehydration [Unknown]
  - Product dose omission [Unknown]
  - Off label use [Unknown]
  - Metabolic disorder [Unknown]
  - Weight decreased [Recovering/Resolving]
  - Blood magnesium decreased [Unknown]
